FAERS Safety Report 4318293-8 (Version None)
Quarter: 2004Q1

REPORT INFORMATION
  Report Type: 
  Country: None (occurrence: None)
  Receive Date: 20040315
  Receipt Date: 20031120
  Transmission Date: 20041129
  Serious: No
  Sender: FDA-Public Use
  Company Number: 2003187702US

PATIENT
  Age: 72 Year
  Sex: Female

DRUGS (2)
  1. BEXTRA [Suspect]
     Indication: ARTHRITIS
     Dosage: 10 MG
     Dates: start: 20031113, end: 20031113
  2. AMITRIPTYLINE HCL [Concomitant]

REACTIONS (1)
  - AFFECTIVE DISORDER [None]
